FAERS Safety Report 5740010-5 (Version None)
Quarter: 2008Q2

REPORT INFORMATION
  Report Type: 
  Country: None (occurrence: None)
  Receive Date: 20080516
  Receipt Date: 20080505
  Transmission Date: 20081010
  Serious: Yes (Other)
  Sender: FDA-Public Use
  Company Number: HQWYE895213JUL06

PATIENT
  Sex: Female

DRUGS (1)
  1. PREMARIN [Suspect]
     Dosage: .625 MG, 204 MOS. (17 YEARS)
     Dates: start: 19840101, end: 20010101

REACTIONS (2)
  - BREAST CANCER [None]
  - BREAST CANCER FEMALE [None]
